FAERS Safety Report 25869395 (Version 3)
Quarter: 2025Q4

REPORT INFORMATION
  Report Type: Report from Study
  Country: US (occurrence: US)
  Receive Date: 20251001
  Receipt Date: 20251103
  Transmission Date: 20260117
  Serious: Yes (Hospitalization)
  Sender: PFIZER
  Company Number: US-PFIZER INC-202500172301

PATIENT
  Age: 14 Year
  Sex: Male

DRUGS (4)
  1. LORBRENA [Suspect]
     Active Substance: LORLATINIB
     Indication: Adrenal gland cancer metastatic
     Dosage: TAKE 1 TABLET OF 100MG WITH 2 TABLETS OF 25MG. TOTAL DOSE 150MG, ONCE DAILY
     Dates: start: 2025
  2. LORBRENA [Suspect]
     Active Substance: LORLATINIB
     Indication: Neuroblastoma
     Dosage: ONE 100 MG TABLET, DAILY
     Route: 048
     Dates: start: 2025
  3. LORBRENA [Suspect]
     Active Substance: LORLATINIB
     Dosage: TWO 25 MG TABLETS, DAILY
     Route: 048
     Dates: start: 2025
  4. BACTRIM [Concomitant]
     Active Substance: SULFAMETHOXAZOLE\TRIMETHOPRIM
     Dosage: UNK

REACTIONS (9)
  - Constipation [Recovering/Resolving]
  - Abdominal pain [Not Recovered/Not Resolved]
  - Abdominal pain lower [Not Recovered/Not Resolved]
  - Nausea [Unknown]
  - Vomiting [Unknown]
  - Diarrhoea [Unknown]
  - Off label use [Unknown]
  - Frequent bowel movements [Not Recovered/Not Resolved]
  - Irritability [Recovering/Resolving]

NARRATIVE: CASE EVENT DATE: 20250101
